FAERS Safety Report 20364792 (Version 4)
Quarter: 2022Q1

REPORT INFORMATION
  Report Type: Other
  Country: US (occurrence: None)
  Receive Date: 20220122
  Receipt Date: 20220308
  Transmission Date: 20220423
  Serious: No
  Sender: FDA-Public Use
  Company Number: US-ROCHE-2977115

PATIENT

DRUGS (1)
  1. OCREVUS [Suspect]
     Active Substance: OCRELIZUMAB
     Indication: Primary progressive multiple sclerosis
     Dosage: THEN 600 MG IN EVERY 6 MONTHS
     Route: 065

REACTIONS (4)
  - Blood pressure increased [Unknown]
  - Ear infection [Unknown]
  - COVID-19 [Unknown]
  - White coat hypertension [Unknown]
